FAERS Safety Report 7837697 (Version 3)
Quarter: 2014Q1

REPORT INFORMATION
  Report Type: Spontaneous
  Country: US (occurrence: US)
  Receive Date: 20110302
  Receipt Date: 20140321
  Transmission Date: 20141002
  Serious: Yes (Hospitalization, Other)
  Sender: FDA-Public Use
  Company Number: US-PFIZER INC-2009276449

PATIENT
  Age: 53 Year
  Sex: Female
  Weight: 46.26 kg

DRUGS (17)
  1. DILANTIN [Suspect]
     Indication: CONVULSION PROPHYLAXIS
     Dosage: 1000 MG, (PIGGY BACK)
     Route: 042
     Dates: start: 20070712
  2. DILANTIN [Suspect]
     Dosage: 100 MG, 3X/DAY (EVERY 8 HOURS)
     Route: 042
     Dates: start: 20070712
  3. DILANTIN [Suspect]
     Indication: CONVULSION PROPHYLAXIS
     Dosage: 100 MG, 1X/DAY
     Route: 048
     Dates: start: 20070714
  4. DILANTIN [Suspect]
     Dosage: 100 MG, 3X/DAY
     Route: 048
     Dates: start: 20070715
  5. DILANTIN [Suspect]
     Dosage: 300 MG, 1X/DAY
     Route: 048
     Dates: start: 20070716, end: 20070716
  6. VICODIN [Concomitant]
     Dosage: UNK
  7. FENTANYL [Concomitant]
     Dosage: 200 MG PATCHES, EVERY 3 DAYS
  8. MIRALAX [Concomitant]
     Dosage: 17 G, 1X/DAY
     Route: 048
  9. PREMARIN [Concomitant]
     Dosage: 0.45 MG, 1X/DAY (AT BED TIME)
     Route: 048
  10. PREVACID [Concomitant]
     Dosage: 30 MG, 2X/DAY
     Route: 048
  11. REMERON [Concomitant]
     Dosage: 45 MG, 1X/DAY (AT BED TIME)
     Route: 048
  12. XANAX [Concomitant]
     Dosage: 1 MG, 5XDAY
     Route: 048
  13. DILAUDID [Concomitant]
     Indication: PAIN
     Dosage: 4 MG, EVERY 4 HRS
     Route: 048
  14. DURAGESIC [Concomitant]
     Dosage: 100 UG PATCH, EVERY 72 HOURS
  15. ELAVIL [Concomitant]
     Dosage: 50 MG, 1X/DAY (AT BED TIME)
     Route: 048
  16. FLEXERIL [Concomitant]
     Dosage: 10 MG, 3X/DAY
     Route: 048
  17. DECADRON [Concomitant]
     Dosage: 4 MG, 2X/DAY
     Route: 048

REACTIONS (2)
  - Stevens-Johnson syndrome [Unknown]
  - Toxic epidermal necrolysis [Unknown]
